FAERS Safety Report 5570584-9 (Version None)
Quarter: 2007Q4

REPORT INFORMATION
  Report Type: 
  Country: None (occurrence: None)
  Receive Date: 20071219
  Receipt Date: 20071206
  Transmission Date: 20080405
  Serious: Yes (Hospitalization)
  Sender: FDA-Public Use
  Company Number: 2007BI020541

PATIENT
  Age: 48 Year
  Sex: Female

DRUGS (1)
  1. AVONEX [Suspect]
     Indication: MULTIPLE SCLEROSIS
     Dosage: 30 UG,QW;IM
     Route: 030
     Dates: start: 19980101

REACTIONS (17)
  - ATROPHY [None]
  - BACK PAIN [None]
  - BLOOD GLUCOSE INCREASED [None]
  - CONDITION AGGRAVATED [None]
  - EYE DISORDER [None]
  - FALL [None]
  - FEELING HOT [None]
  - GLAUCOMA [None]
  - HYPOAESTHESIA [None]
  - IMMOBILE [None]
  - MOOD ALTERED [None]
  - MULTIPLE SCLEROSIS [None]
  - NO THERAPEUTIC RESPONSE [None]
  - PARAESTHESIA [None]
  - PERIPHERAL COLDNESS [None]
  - SWELLING FACE [None]
  - URINARY RETENTION [None]
